FAERS Safety Report 23048532 (Version 2)
Quarter: 2023Q4

REPORT INFORMATION
  Report Type: Report from Study
  Country: IT (occurrence: IT)
  Receive Date: 20231010
  Receipt Date: 20231017
  Transmission Date: 20240110
  Serious: Yes (Hospitalization, Other)
  Sender: FDA-Public Use
  Company Number: IT-BAXTER-2023BAX032497

PATIENT
  Age: 74 Year
  Sex: Female
  Weight: 63 kg

DRUGS (21)
  1. CYCLOPHOSPHAMIDE [Suspect]
     Active Substance: CYCLOPHOSPHAMIDE
     Indication: Diffuse large B-cell lymphoma
     Dosage: 1357.3 MG, EVERY 3 WEEKS
     Route: 042
     Dates: start: 20230620, end: 20230801
  2. CYCLOPHOSPHAMIDE [Suspect]
     Active Substance: CYCLOPHOSPHAMIDE
     Dosage: 1297.9 MG, EVERY 3 WEEKS, ONGOING
     Route: 042
     Dates: start: 20230822
  3. DOXORUBICIN [Suspect]
     Active Substance: DOXORUBICIN
     Indication: Diffuse large B-cell lymphoma
     Dosage: 90.5 MG, EVERY 3 WEEKS
     Route: 042
     Dates: start: 20230620, end: 20230801
  4. DOXORUBICIN [Suspect]
     Active Substance: DOXORUBICIN
     Dosage: 86.5 MG, EVERY 3 WEEKS, ONGOING
     Route: 042
     Dates: start: 20230822
  5. VINCRISTINE [Suspect]
     Active Substance: VINCRISTINE
     Indication: Diffuse large B-cell lymphoma
     Dosage: 2 MG, EVERY 3 WEEKS, ONGOING
     Route: 042
     Dates: start: 20230620
  6. RITUXIMAB [Suspect]
     Active Substance: RITUXIMAB
     Indication: Diffuse large B-cell lymphoma
     Dosage: 678.6 MG, EVERY 3 WEEKS
     Route: 042
     Dates: start: 20200620, end: 20230801
  7. RITUXIMAB [Suspect]
     Active Substance: RITUXIMAB
     Dosage: 648.9 MG, EVERY 3 WEEKS, ONGOING
     Route: 042
     Dates: start: 20230822
  8. PREDNISONE [Suspect]
     Active Substance: PREDNISONE
     Indication: Diffuse large B-cell lymphoma
     Dosage: 100 MG DAILY C1-6, DAY 1-5, EVERY 1 DAYS, ONGOING
     Route: 048
     Dates: start: 20230620
  9. POLYETHYLENE GLYCOLS [Concomitant]
     Active Substance: POLYETHYLENE GLYCOLS
     Indication: Constipation
     Dosage: 1 PACKET, EVERY 24 HOURS
     Route: 065
     Dates: start: 20230624
  10. BACTRIM [Concomitant]
     Active Substance: SULFAMETHOXAZOLE\TRIMETHOPRIM
     Indication: Antifungal prophylaxis
     Dosage: 1 TABLET, 3/WEEKS
     Route: 065
     Dates: start: 20230620
  11. FUROSEMIDE [Concomitant]
     Active Substance: FUROSEMIDE
     Indication: Prophylaxis
     Dosage: 25 + 37 MG, EVERY 2 DAYS, START DATE: NOV-2022
     Route: 065
  12. ACYCLOVIR [Concomitant]
     Active Substance: ACYCLOVIR
     Indication: Antiviral prophylaxis
     Dosage: 400 MG, 3/WEEKS
     Route: 065
     Dates: start: 20230620
  13. BISOPROLOL [Concomitant]
     Active Substance: BISOPROLOL\BISOPROLOL FUMARATE
     Indication: Hypertension
     Dosage: 1.25 MG, EVERY 24 HOURS, START DATE: NOV-2022
     Route: 065
  14. VALSARTAN [Concomitant]
     Active Substance: VALSARTAN
     Indication: Hypertension
     Dosage: 320 MG, EVERY 24 HOURS, START DATE: NOV-2022
     Route: 065
  15. PANTOPRAZOLE [Concomitant]
     Active Substance: PANTOPRAZOLE
     Indication: Antacid therapy
     Dosage: 20 MG, EVERY 24 HOURS
     Route: 065
     Dates: start: 20230620
  16. AMIODARONE [Concomitant]
     Active Substance: AMIODARONE
     Indication: Arrhythmia prophylaxis
     Dosage: 200 MG, EVERY 24 HOURS, START DATE: NOV-2022
     Route: 065
  17. SODIUM CHLORIDE [Concomitant]
     Active Substance: SODIUM CHLORIDE
     Indication: Fluid replacement
     Dosage: 10 VIAL, EVERY 1 DAYS
     Route: 065
     Dates: start: 20230621
  18. METOCLOPRAMIDE [Concomitant]
     Active Substance: METOCLOPRAMIDE
     Indication: Prophylaxis of nausea and vomiting
     Dosage: 1 TABLET, AS NECESSARY
     Route: 065
     Dates: start: 20230622
  19. ACETAMINOPHEN [Concomitant]
     Active Substance: ACETAMINOPHEN
     Indication: Antipyresis
     Dosage: 1000 MG, AS NECESSARY
     Route: 065
     Dates: start: 20230620
  20. EPOETIN ALFA BS [Concomitant]
     Active Substance: ERYTHROPOIETIN
     Indication: Anaemia
     Dosage: 40000 UL, EVERY 1 WEEKS
     Route: 065
     Dates: start: 20230629
  21. FILGRASTIM [Concomitant]
     Active Substance: FILGRASTIM
     Indication: Prophylaxis
     Dosage: 30 MU/L, EVERY 1 DAYS
     Route: 065
     Dates: start: 20230719, end: 20230905

REACTIONS (1)
  - Febrile neutropenia [Not Recovered/Not Resolved]

NARRATIVE: CASE EVENT DATE: 20230922
